FAERS Safety Report 6739676-2 (Version None)
Quarter: 2010Q2

REPORT INFORMATION
  Report Type: 
  Country: None (occurrence: None)
  Receive Date: 20100525
  Receipt Date: 20100429
  Transmission Date: 20101027
  Serious: Yes (Other)
  Sender: FDA-Public Use
  Company Number: US-AMGEN-US382073

PATIENT
  Sex: Female
  Weight: 27.1 kg

DRUGS (4)
  1. NPLATE [Suspect]
     Indication: IDIOPATHIC THROMBOCYTOPENIC PURPURA
     Route: 058
     Dates: start: 20090206, end: 20090501
  2. CORTICOSTEROIDS [Concomitant]
     Route: 065
     Dates: start: 20080502
  3. IMMU-G [Concomitant]
     Route: 042
     Dates: start: 20090227
  4. PREDNISONE TAB [Concomitant]
     Route: 048
     Dates: start: 20090206

REACTIONS (3)
  - DRUG INEFFECTIVE [None]
  - EPISTAXIS [None]
  - PAIN IN EXTREMITY [None]
